FAERS Safety Report 19019254 (Version 1)
Quarter: 2021Q1

REPORT INFORMATION
  Report Type: Other
  Country: CN (occurrence: CN)
  Receive Date: 20210317
  Receipt Date: 20210317
  Transmission Date: 20210420
  Serious: Yes (Other)
  Sender: FDA-Public Use
  Company Number: CN-ASTELLAS-2021US009279

PATIENT
  Age: 29 Year
  Sex: Male

DRUGS (3)
  1. TIGECYCLINE. [Suspect]
     Active Substance: TIGECYCLINE
     Indication: ANTI-INFECTIVE THERAPY
     Route: 041
     Dates: start: 20210209, end: 20210221
  2. PROGRAF [Suspect]
     Active Substance: TACROLIMUS
     Indication: IMMUNOSUPPRESSION
     Dosage: UNK UNK, UNKNOWN FREQ.
     Route: 048
     Dates: start: 20210206
  3. PROGRAF [Suspect]
     Active Substance: TACROLIMUS
     Dosage: 2.5 MG, TWICE DAILY (EVERY 12 HOUR)
     Route: 048
     Dates: start: 20210209

REACTIONS (3)
  - Immunosuppressant drug level increased [Unknown]
  - Amylase increased [Not Recovered/Not Resolved]
  - Lipase increased [Not Recovered/Not Resolved]

NARRATIVE: CASE EVENT DATE: 20210215
